FAERS Safety Report 7001029-X (Version None)
Quarter: 2010Q3

REPORT INFORMATION
  Report Type: 
  Country: None (occurrence: None)
  Receive Date: 20100920
  Receipt Date: 20080922
  Transmission Date: 20110219
  Serious: Yes (Hospitalization)
  Sender: FDA-Public Use
  Company Number: US-ASTRAZENECA-2009SE11127

PATIENT
  Age: 3287 Day
  Sex: Male
  Weight: 46.3 kg

DRUGS (3)
  1. SEROQUEL [Suspect]
     Route: 048
     Dates: start: 20020701
  2. DEPAKOTE [Concomitant]
     Dates: start: 20020501
  3. ZYPREXA [Concomitant]
     Dates: start: 20020501

REACTIONS (16)
  - ABNORMAL BEHAVIOUR [None]
  - AGGRESSION [None]
  - ANGER [None]
  - BIPOLAR DISORDER [None]
  - DEHYDRATION [None]
  - DEVELOPMENTAL DELAY [None]
  - DIABETIC KETOACIDOSIS [None]
  - DISTURBANCE IN ATTENTION [None]
  - GASTROOESOPHAGEAL REFLUX DISEASE [None]
  - HIATUS HERNIA [None]
  - MENTAL DISABILITY [None]
  - OVERWEIGHT [None]
  - READING DISORDER [None]
  - SPEECH DISORDER [None]
  - TYPE 1 DIABETES MELLITUS [None]
  - VOMITING [None]
